FAERS Safety Report 4788470-0 (Version None)
Quarter: 2005Q4

REPORT INFORMATION
  Report Type: 
  Country: None (occurrence: None)
  Receive Date: 20051005
  Receipt Date: 20051003
  Transmission Date: 20060501
  Serious: Yes (Hospitalization)
  Sender: FDA-Public Use
  Company Number: AU-SANOFI-SYNTHELABO-F01200502017

PATIENT
  Sex: Female

DRUGS (5)
  1. OXALIPLATIN [Suspect]
     Indication: COLON CANCER
     Route: 042
     Dates: start: 20050907, end: 20050907
  2. FLUOROURACIL [Suspect]
     Dosage: 760 MG IV BOLUS AND 1140 MG CONTINUOUS INFUSION Q2W
     Route: 042
     Dates: start: 20050907, end: 20050908
  3. LEUCOVORIN [Suspect]
     Route: 042
     Dates: start: 20050907, end: 20050908
  4. ZOTON [Concomitant]
     Route: 065
     Dates: start: 19980615
  5. LIPITOR [Concomitant]
     Route: 065
     Dates: start: 20020615

REACTIONS (1)
  - GASTRITIS [None]
